FAERS Safety Report 4582878-4 (Version None)
Quarter: 2005Q1

REPORT INFORMATION
  Report Type: 
  Country: None (occurrence: None)
  Receive Date: 20050127
  Receipt Date: 20040913
  Transmission Date: 20050727
  Serious: No
  Sender: FDA-Public Use
  Company Number: USA040978109

PATIENT
  Age: 42 Year
  Sex: Female
  Weight: 70 kg

DRUGS (3)
  1. STRATTERA [Suspect]
     Indication: ATTENTION DEFICIT/HYPERACTIVITY DISORDER
     Dosage: 80 MG DAY
     Dates: start: 20040901
  2. SYNTHROID [Concomitant]
  3. CYTOMEL [Concomitant]

REACTIONS (4)
  - BODY TEMPERATURE INCREASED [None]
  - PARAESTHESIA [None]
  - PRURITUS [None]
  - URINARY TRACT INFECTION [None]
